FAERS Safety Report 8112306-3 (Version None)
Quarter: 2012Q1

REPORT INFORMATION
  Report Type: 
  Country: None (occurrence: None)
  Receive Date: 20120203
  Receipt Date: 20120203
  Transmission Date: 20120608
  Serious: Yes (Life-Threatening)
  Sender: FDA-Public Use
  Company Number: None

PATIENT
  Age: 75 Year
  Sex: Female
  Weight: 58.967 kg

DRUGS (1)
  1. LOVAZA [Suspect]
     Indication: BLOOD CHOLESTEROL INCREASED
     Dosage: 2 CAPSULES
     Route: 048
     Dates: start: 20111217, end: 20120110

REACTIONS (9)
  - HEADACHE [None]
  - FAECES DISCOLOURED [None]
  - DIARRHOEA [None]
  - ABNORMAL FAECES [None]
  - ASTHENIA [None]
  - HAEMATOCHEZIA [None]
  - FATIGUE [None]
  - PAIN [None]
  - MUSCLE SPASMS [None]
